FAERS Safety Report 10142693 (Version 2)
Quarter: 2014Q2

REPORT INFORMATION
  Report Type: Spontaneous
  Country: US (occurrence: US)
  Receive Date: 20140430
  Receipt Date: 20140507
  Transmission Date: 20141212
  Serious: No
  Sender: FDA-Public Use
  Company Number: US-009507513-1404USA013574

PATIENT
  Age: 76 Year
  Sex: Female
  Weight: 74.83 kg

DRUGS (2)
  1. OXYTROL FOR WOMEN [Suspect]
     Indication: HYPERTONIC BLADDER
     Dosage: UNK, UNKNOWN
     Route: 062
     Dates: start: 201312, end: 20140423
  2. BIOTENE [Concomitant]
     Indication: DRY MOUTH
     Dosage: UNK, UNKNOWN

REACTIONS (2)
  - Rash [Unknown]
  - Product adhesion issue [Unknown]
